FAERS Safety Report 5939720-6 (Version None)
Quarter: 2008Q4

REPORT INFORMATION
  Report Type: 
  Country: None (occurrence: None)
  Receive Date: 20081030
  Receipt Date: 20081030
  Transmission Date: 20090506
  Serious: Yes (Death)
  Sender: FDA-Public Use
  Company Number: None

PATIENT
  Sex: Male
  Weight: 86.1834 kg

DRUGS (3)
  1. CYMBALTA [Suspect]
     Indication: DIABETIC NEUROPATHY
     Dosage: 60MG- 30MG. (1) PER DAY
     Dates: start: 20070301
  2. LAMICTAL [Suspect]
     Indication: DEPRESSION
     Dosage: 25 MG.
  3. LAMICTAL [Suspect]
     Indication: PAIN
     Dosage: 25 MG.

REACTIONS (1)
  - DEATH [None]
